FAERS Safety Report 14261577 (Version 1)
Quarter: 2017Q4

REPORT INFORMATION
  Report Type: Spontaneous
  Country: US (occurrence: US)
  Receive Date: 20171208
  Receipt Date: 20171208
  Transmission Date: 20180321
  Serious: No
  Sender: FDA-Public Use
  Company Number: US-ASTRAZENECA-2017SF17874

PATIENT
  Age: 22186 Day
  Sex: Male

DRUGS (1)
  1. FARXIGA [Suspect]
     Active Substance: DAPAGLIFLOZIN PROPANEDIOL
     Indication: TYPE 2 DIABETES MELLITUS
     Dosage: 5.0MG UNKNOWN
     Route: 048
     Dates: start: 201709, end: 20171002

REACTIONS (3)
  - Blood creatinine increased [Unknown]
  - Hypophagia [Unknown]
  - Renal failure [Unknown]

NARRATIVE: CASE EVENT DATE: 20170929
